FAERS Safety Report 25986348 (Version 3)
Quarter: 2025Q4

REPORT INFORMATION
  Report Type: Spontaneous
  Country: JP (occurrence: JP)
  Receive Date: 20251031
  Receipt Date: 20251216
  Transmission Date: 20260117
  Serious: Yes (Death, Other)
  Sender: JAZZ
  Company Number: JP-JAZZ PHARMACEUTICALS-2024-JP-021408

PATIENT
  Age: 69 Year
  Sex: Female

DRUGS (2)
  1. VYXEOS [Suspect]
     Active Substance: CYTARABINE\DAUNORUBICIN
     Indication: Acute myeloid leukaemia
     Dosage: 100 UNITS PER SQUARE METRE, DAILY
     Dates: start: 20240717, end: 20240721
  2. VYXEOS [Suspect]
     Active Substance: CYTARABINE\DAUNORUBICIN
     Dosage: UNK
     Dates: start: 20240919, end: 20240923

REACTIONS (8)
  - Acute myeloid leukaemia [Fatal]
  - Cytopenia [Unknown]
  - Infection [Unknown]
  - Blast cell count increased [Unknown]
  - C-reactive protein increased [Unknown]
  - Nausea [Unknown]
  - Decreased appetite [Unknown]
  - Therapeutic product effect incomplete [Unknown]
